FAERS Safety Report 26174194 (Version 1)
Quarter: 2025Q4

REPORT INFORMATION
  Report Type: Spontaneous
  Country: CA (occurrence: CA)
  Receive Date: 20251218
  Receipt Date: 20251218
  Transmission Date: 20260117
  Serious: Yes (Other)
  Sender: AMGEN
  Company Number: CA-AMGEN-CANSP2025245626

PATIENT

DRUGS (25)
  1. ETANERCEPT [Suspect]
     Active Substance: ETANERCEPT
     Indication: Rheumatoid arthritis
     Dosage: UNK
     Route: 065
  2. ETANERCEPT [Suspect]
     Active Substance: ETANERCEPT
     Indication: Ankylosing spondylitis
  3. ETANERCEPT [Suspect]
     Active Substance: ETANERCEPT
     Indication: Psoriatic arthropathy
  4. ETANERCEPT [Suspect]
     Active Substance: ETANERCEPT
     Indication: Psoriasis
  5. ETANERCEPT [Suspect]
     Active Substance: ETANERCEPT
     Indication: Inflammatory bowel disease
  6. ADALIMUMAB [Suspect]
     Active Substance: ADALIMUMAB
     Indication: Rheumatoid arthritis
     Dosage: UNK
     Route: 065
  7. ADALIMUMAB [Suspect]
     Active Substance: ADALIMUMAB
     Indication: Ankylosing spondylitis
  8. ADALIMUMAB [Suspect]
     Active Substance: ADALIMUMAB
     Indication: Psoriatic arthropathy
  9. ADALIMUMAB [Suspect]
     Active Substance: ADALIMUMAB
     Indication: Psoriasis
  10. ADALIMUMAB [Suspect]
     Active Substance: ADALIMUMAB
     Indication: Inflammatory bowel disease
  11. INFLIXIMAB [Suspect]
     Active Substance: INFLIXIMAB
     Indication: Rheumatoid arthritis
     Dosage: UNK
     Route: 065
  12. INFLIXIMAB [Suspect]
     Active Substance: INFLIXIMAB
     Indication: Ankylosing spondylitis
  13. INFLIXIMAB [Suspect]
     Active Substance: INFLIXIMAB
     Indication: Psoriatic arthropathy
  14. INFLIXIMAB [Suspect]
     Active Substance: INFLIXIMAB
     Indication: Psoriasis
  15. INFLIXIMAB [Suspect]
     Active Substance: INFLIXIMAB
     Indication: Inflammatory bowel disease
  16. GOLIMUMAB [Suspect]
     Active Substance: GOLIMUMAB
     Indication: Rheumatoid arthritis
     Dosage: UNK
     Route: 065
  17. GOLIMUMAB [Suspect]
     Active Substance: GOLIMUMAB
     Indication: Ankylosing spondylitis
  18. GOLIMUMAB [Suspect]
     Active Substance: GOLIMUMAB
     Indication: Psoriatic arthropathy
  19. GOLIMUMAB [Suspect]
     Active Substance: GOLIMUMAB
     Indication: Psoriasis
  20. GOLIMUMAB [Suspect]
     Active Substance: GOLIMUMAB
     Indication: Inflammatory bowel disease
  21. CERTOLIZUMAB [Suspect]
     Active Substance: CERTOLIZUMAB
     Indication: Rheumatoid arthritis
     Dosage: UNK
     Route: 065
  22. CERTOLIZUMAB [Suspect]
     Active Substance: CERTOLIZUMAB
     Indication: Ankylosing spondylitis
  23. CERTOLIZUMAB [Suspect]
     Active Substance: CERTOLIZUMAB
     Indication: Psoriatic arthropathy
  24. CERTOLIZUMAB [Suspect]
     Active Substance: CERTOLIZUMAB
     Indication: Psoriasis
  25. CERTOLIZUMAB [Suspect]
     Active Substance: CERTOLIZUMAB
     Indication: Inflammatory bowel disease

REACTIONS (10)
  - Premature delivery [Unknown]
  - Premature labour [Unknown]
  - Premature rupture of membranes [Unknown]
  - Prolonged labour [Unknown]
  - Diabetes mellitus [Unknown]
  - Gestational diabetes [Unknown]
  - Chronic kidney disease [Unknown]
  - Asthma [Unknown]
  - Hypertension [Unknown]
  - Maternal exposure during pregnancy [Unknown]
